FAERS Safety Report 7916842-1 (Version None)
Quarter: 2011Q4

REPORT INFORMATION
  Report Type: 
  Country: None (occurrence: None)
  Receive Date: 20111116
  Receipt Date: 20111109
  Transmission Date: 20120403
  Serious: Yes (Hospitalization)
  Sender: FDA-Public Use
  Company Number: IT-BRISTOL-MYERS SQUIBB COMPANY-16224305

PATIENT
  Age: 80 Year
  Sex: Male

DRUGS (6)
  1. OMEPRAZOLE [Concomitant]
  2. COUMADIN [Suspect]
     Indication: ATRIAL FIBRILLATION
     Dosage: 1 DF: 1 UNIT INTER ON:13SEP2011
     Route: 048
     Dates: start: 20110713
  3. DARBEPOETIN ALFA [Concomitant]
     Indication: NEPHROGENIC ANAEMIA
  4. METOCLOL [Concomitant]
  5. ROCALTROL [Concomitant]
  6. FOLINA [Concomitant]

REACTIONS (3)
  - ANAEMIA [None]
  - SMALL INTESTINAL HAEMORRHAGE [None]
  - HYPOCOAGULABLE STATE [None]
